FAERS Safety Report 6361903-4 (Version None)
Quarter: 2009Q3

REPORT INFORMATION
  Report Type: 
  Country: None (occurrence: None)
  Receive Date: 20090821
  Receipt Date: 20090714
  Transmission Date: 20100115
  Serious: No
  Sender: FDA-Public Use
  Company Number: 8049007

PATIENT
  Age: 46 Year
  Sex: Female
  Weight: 83.2 kg

DRUGS (11)
  1. CIMZIA [Suspect]
     Indication: CROHN'S DISEASE
     Dosage: 400 MG SC
     Route: 058
     Dates: start: 20090220
  2. HUMULIN R [Concomitant]
  3. CIPROFLAXACIN [Concomitant]
  4. METRONIDAZOLE [Concomitant]
  5. MERCAPTOPURINE [Concomitant]
  6. VITAMIN B-12 [Concomitant]
  7. IRON [Concomitant]
  8. OXYCDONE [Concomitant]
  9. AMBIEN CR [Concomitant]
  10. CYCLOBENZAPRINE [Concomitant]
  11. PREDNISONE [Concomitant]

REACTIONS (3)
  - POLLAKIURIA [None]
  - UPPER EXTREMITY MASS [None]
  - VAGINAL DISCHARGE [None]
